FAERS Safety Report 13818750 (Version 2)
Quarter: 2018Q1

REPORT INFORMATION
  Report Type: Spontaneous
  Country: US (occurrence: US)
  Receive Date: 20170731
  Receipt Date: 20180201
  Transmission Date: 20180508
  Serious: No
  Sender: FDA-Public Use
  Company Number: US-EXELIXIS-CABO-16007853

PATIENT
  Age: 75 Year
  Sex: Female

DRUGS (14)
  1. CABOMETYX [Suspect]
     Active Substance: CABOZANTINIB S-MALATE
     Indication: RENAL CELL CARCINOMA
     Dosage: 60 MG, QD
     Route: 048
     Dates: start: 20160825, end: 20161001
  2. DIAMOX SEQUELS [Suspect]
     Active Substance: ACETAZOLAMIDE
  3. MULTIVITAMIN [Concomitant]
     Active Substance: VITAMINS
  4. LISINOPRIL. [Concomitant]
     Active Substance: LISINOPRIL
     Indication: HYPERTENSION
  5. CABOMETYX [Suspect]
     Active Substance: CABOZANTINIB S-MALATE
     Indication: METASTASES TO LIVER
     Dosage: 40 MG, QD
     Route: 048
     Dates: start: 20161022, end: 2017
  6. COSOPT [Concomitant]
     Active Substance: DORZOLAMIDE HYDROCHLORIDE\TIMOLOL MALEATE
     Indication: GLAUCOMA
  7. LEVOTHYROXINE. [Concomitant]
     Active Substance: LEVOTHYROXINE
     Indication: HYPOTHYROIDISM
  8. ALPHAGAN P [Concomitant]
     Active Substance: BRIMONIDINE TARTRATE
     Indication: GLAUCOMA
  9. GLIPIZIDE. [Concomitant]
     Active Substance: GLIPIZIDE
     Indication: DIABETES MELLITUS
  10. CABOMETYX [Suspect]
     Active Substance: CABOZANTINIB S-MALATE
     Indication: METASTASES TO PANCREAS
     Dosage: 60 MG, QD
     Route: 048
     Dates: start: 2017
  11. PROCARDIA [Concomitant]
     Active Substance: NIFEDIPINE
     Indication: HYPERTENSION
  12. DORZOLAMIDE [Concomitant]
     Active Substance: DORZOLAMIDE
  13. ASPIRIN. [Concomitant]
     Active Substance: ASPIRIN
  14. LATANOPROST. [Concomitant]
     Active Substance: LATANOPROST
     Indication: GLAUCOMA

REACTIONS (13)
  - Blood potassium decreased [Unknown]
  - Hyperkeratosis [Recovering/Resolving]
  - Intraocular pressure increased [Not Recovered/Not Resolved]
  - Electrolyte depletion [Unknown]
  - Laryngitis [Not Recovered/Not Resolved]
  - Thyroid function test abnormal [Unknown]
  - Pain in extremity [Recovering/Resolving]
  - Asthenia [Not Recovered/Not Resolved]
  - Dysphonia [Not Recovered/Not Resolved]
  - Diarrhoea [Not Recovered/Not Resolved]
  - Wound [Unknown]
  - Glossodynia [Not Recovered/Not Resolved]
  - Eye infection viral [Not Recovered/Not Resolved]

NARRATIVE: CASE EVENT DATE: 201609
